FAERS Safety Report 10050503 (Version 1)
Quarter: 2014Q2

REPORT INFORMATION
  Report Type: Spontaneous
  Country: US (occurrence: US)
  Receive Date: 20140401
  Receipt Date: 20140401
  Transmission Date: 20141212
  Serious: No
  Sender: FDA-Public Use
  Company Number: US-ASTRAZENECA-2013SE83041

PATIENT
  Age: 37 Year
  Sex: Male
  Weight: 121.6 kg

DRUGS (9)
  1. NEXIUM [Suspect]
     Indication: GASTROOESOPHAGEAL REFLUX DISEASE
     Route: 048
     Dates: start: 20131001, end: 20131021
  2. NEXIUM [Suspect]
     Indication: OESOPHAGEAL SPASM
     Route: 048
     Dates: start: 20131001, end: 20131021
  3. MORPHINE [Suspect]
     Indication: PAIN
     Route: 048
     Dates: start: 20131014
  4. HYOSCYAMINE [Concomitant]
     Indication: OESOPHAGEAL SPASM
     Route: 048
     Dates: start: 20130531
  5. EFFEXOR XR [Concomitant]
     Indication: DEPRESSION
     Route: 048
     Dates: start: 2006
  6. HYDROCODONE-IBUPROFEN [Concomitant]
     Indication: PAIN
     Dosage: 7.5/200 MG Q12H
     Route: 048
     Dates: start: 20131014
  7. LYRICA [Concomitant]
     Indication: DIABETIC NEUROPATHY
     Route: 048
     Dates: start: 20130820
  8. CLONAZEPAM [Concomitant]
     Indication: ANXIETY
     Route: 048
     Dates: start: 2007
  9. LEVOTHYROXINE [Concomitant]
     Indication: HYPOTHYROIDISM
     Dosage: 50 MCG DAILY
     Route: 048
     Dates: start: 201302

REACTIONS (4)
  - Gastritis [Unknown]
  - Oesophagitis [Unknown]
  - Hiatus hernia [Unknown]
  - Drug dose omission [Unknown]
